FAERS Safety Report 4953960-4 (Version None)
Quarter: 2006Q1

REPORT INFORMATION
  Report Type: 
  Country: None (occurrence: None)
  Receive Date: 20060321
  Receipt Date: 20060308
  Transmission Date: 20060701
  Serious: Yes (Hospitalization, Other)
  Sender: FDA-Public Use
  Company Number: 200610187BFR

PATIENT
  Age: 73 Year
  Sex: Female

DRUGS (5)
  1. MOXIFLOXACIN HYDROCHLORIDE [Suspect]
     Indication: SINUSITIS
     Dosage: 400 MG, QD, ORAL
     Route: 048
     Dates: start: 20050701, end: 20050705
  2. MUCOMYST [Concomitant]
  3. NETROMYCIN [Concomitant]
  4. SOLU-MEDROL [Concomitant]
  5. BECONASE [Concomitant]

REACTIONS (3)
  - ARRHYTHMIA [None]
  - CHEST DISCOMFORT [None]
  - TACHYCARDIA [None]
